FAERS Safety Report 11633797 (Version 1)
Quarter: 2015Q4

REPORT INFORMATION
  Report Type: Spontaneous
  Country: US (occurrence: US)
  Receive Date: 20151015
  Receipt Date: 20151015
  Transmission Date: 20160304
  Serious: No
  Sender: FDA-Public Use
  Company Number: US-TORRENT-00001000

PATIENT
  Sex: Female

DRUGS (1)
  1. ZOLPIDEM TARTRATE TABLET [Suspect]
     Active Substance: ZOLPIDEM TARTRATE
     Indication: INSOMNIA
     Dosage: SHE RECEIVED NORMAL DOSE OF HALF TABLET AND 1 AND HALF TABLETS ON DIFFERENT NIGHTS
     Route: 048

REACTIONS (3)
  - Medication error [Unknown]
  - Drug ineffective [Unknown]
  - Incorrect dose administered [None]
